FAERS Safety Report 9860791 (Version 1)
Quarter: 2014Q1

REPORT INFORMATION
  Report Type: Spontaneous
  Country: US (occurrence: None)
  Receive Date: 20140131
  Receipt Date: 20140131
  Transmission Date: 20141002
  Serious: No
  Sender: FDA-Public Use
  Company Number: None

PATIENT
  Age: 36 Year
  Sex: Female
  Weight: 65.77 kg

DRUGS (2)
  1. DULOXETINE [Suspect]
     Indication: PROPHYLAXIS
     Route: 048
     Dates: start: 20140101, end: 20140129
  2. DULOXETINE [Suspect]
     Indication: DEPRESSION
     Route: 048
     Dates: start: 20140101, end: 20140129

REACTIONS (4)
  - Drug withdrawal syndrome [None]
  - Depression [None]
  - Condition aggravated [None]
  - Product substitution issue [None]
